FAERS Safety Report 21793733 (Version 1)
Quarter: 2022Q4

REPORT INFORMATION
  Report Type: Spontaneous
  Country: US (occurrence: US)
  Receive Date: 20221229
  Receipt Date: 20221229
  Transmission Date: 20230113
  Serious: Yes (Hospitalization, Other)
  Sender: FDA-Public Use
  Company Number: US-GLAXOSMITHKLINE-US2022192414

PATIENT

DRUGS (1)
  1. TRELEGY ELLIPTA [Suspect]
     Active Substance: FLUTICASONE FUROATE\UMECLIDINIUM BROMIDE\VILANTEROL TRIFENATATE
     Indication: Chronic obstructive pulmonary disease
     Dosage: UNK, TRELEGY 200/62.5/25 MCG DAILY
     Dates: start: 201901

REACTIONS (3)
  - Spinal fracture [Recovered/Resolved]
  - Spinal fracture treatment [Unknown]
  - Fall [Unknown]

NARRATIVE: CASE EVENT DATE: 20220901
